FAERS Safety Report 16490527 (Version 1)
Quarter: 2019Q2

REPORT INFORMATION
  Report Type: Spontaneous
  Country: FR (occurrence: FR)
  Receive Date: 20190628
  Receipt Date: 20190628
  Transmission Date: 20190711
  Serious: Yes (Other)
  Sender: FDA-Public Use
  Company Number: FR-ROCHE-2340692

PATIENT
  Age: 54 Year
  Sex: Male

DRUGS (2)
  1. GILENYA [Concomitant]
     Active Substance: FINGOLIMOD HYDROCHLORIDE
  2. OCREVUS [Suspect]
     Active Substance: OCRELIZUMAB
     Indication: RELAPSING-REMITTING MULTIPLE SCLEROSIS
     Route: 042
     Dates: end: 20190503

REACTIONS (5)
  - Multiple sclerosis [Unknown]
  - Disability [Unknown]
  - Expanded disability status scale score decreased [Unknown]
  - Nuclear magnetic resonance imaging spinal abnormal [Unknown]
  - Cerebral atrophy [Unknown]
